FAERS Safety Report 8888190 (Version 1)
Quarter: 2012Q4

REPORT INFORMATION
  Report Type: 
  Country: US (occurrence: US)
  Receive Date: 20121106
  Receipt Date: 20121106
  Transmission Date: 20130627
  Serious: Yes (Other)
  Sender: FDA-Public Use
  Company Number: US-SANOFI-AVENTIS-2012SA079029

PATIENT
  Age: 90 Year
  Sex: Female

DRUGS (1)
  1. LANTUS [Suspect]
     Dosage: Dose:20 unit(s)
     Route: 058

REACTIONS (1)
  - Macular degeneration [Not Recovered/Not Resolved]
